FAERS Safety Report 8402412-8 (Version None)
Quarter: 2012Q2

REPORT INFORMATION
  Report Type: 
  Country: None (occurrence: None)
  Receive Date: 20120601
  Receipt Date: 20120525
  Transmission Date: 20120825
  Serious: Yes (Other)
  Sender: FDA-Public Use
  Company Number: JP-PFIZER INC-2012127438

PATIENT
  Sex: Female

DRUGS (2)
  1. LOXONIN [Suspect]
     Route: 065
  2. ZITHROMAX [Suspect]
     Dosage: 500 MG, 1X/DAY
     Route: 048

REACTIONS (1)
  - VULVAR EROSION [None]
